FAERS Safety Report 5874511-6 (Version None)
Quarter: 2008Q3

REPORT INFORMATION
  Report Type: 
  Country: None (occurrence: None)
  Receive Date: 20080909
  Receipt Date: 20080828
  Transmission Date: 20090109
  Serious: Yes (Other)
  Sender: FDA-Public Use
  Company Number: PHHY2008FR19593

PATIENT
  Age: 70 Year
  Sex: Male

DRUGS (7)
  1. LIORESAL [Suspect]
     Indication: MULTIPLE SCLEROSIS
     Dosage: 20 MG DAILY
     Route: 048
  2. LIORESAL [Suspect]
     Dosage: 10 MG
     Route: 048
  3. MANTADIX [Concomitant]
  4. NEURONTIN [Concomitant]
     Dosage: 4 DF
  5. HEPT-A-MYL [Concomitant]
  6. ZOCOR [Concomitant]
  7. RHINOCORT (BECLOMETASONE DIPROPIONATE) [Concomitant]

REACTIONS (3)
  - INTRAOCULAR PRESSURE INCREASED [None]
  - OPTIC NERVE DISORDER [None]
  - VISUAL FIELD DEFECT [None]
